FAERS Safety Report 5464326-5 (Version None)
Quarter: 2007Q3

REPORT INFORMATION
  Report Type: 
  Country: None (occurrence: None)
  Receive Date: 20070921
  Receipt Date: 20070913
  Transmission Date: 20080115
  Serious: Yes (Hospitalization)
  Sender: FDA-Public Use
  Company Number: US-ELI_LILLY_AND_COMPANY-US200707006813

PATIENT
  Age: 72 Year
  Sex: Male

DRUGS (7)
  1. VYTORIN [Concomitant]
     Dosage: UNK D/F, DAILY (1/D)
  2. LASIX [Concomitant]
     Dosage: 40 MG, DAILY (1/D)
  3. METFORMIN [Concomitant]
     Dosage: 1000 MG, 2/D
  4. BYETTA [Suspect]
     Indication: TYPE 2 DIABETES MELLITUS
     Dosage: 5 UG, 2/D
     Route: 058
     Dates: start: 20060101
  5. BYETTA [Suspect]
     Dosage: 10 UG, 2/D
     Route: 058
  6. AVANDIA [Concomitant]
     Indication: DIABETES MELLITUS
     Dosage: UNK, UNKNOWN
  7. ANTI-DIABETICS [Concomitant]
     Indication: DIABETES MELLITUS
     Dosage: UNK, UNKNOWN

REACTIONS (7)
  - AORTIC ANEURYSM [None]
  - ARTERIOSCLEROSIS [None]
  - BLOOD GLUCOSE INCREASED [None]
  - CHRONIC OBSTRUCTIVE PULMONARY DISEASE [None]
  - CORONARY ARTERY DISEASE [None]
  - DRUG EFFECT DECREASED [None]
  - PULMONARY HYPERTENSION [None]
